FAERS Safety Report 23384004 (Version 1)
Quarter: 2024Q1

REPORT INFORMATION
  Report Type: Spontaneous
  Country: US (occurrence: None)
  Receive Date: 20240109
  Receipt Date: 20240109
  Transmission Date: 20240410
  Serious: Yes (Hospitalization, Other)
  Sender: FDA-Public Use
  Company Number: None

PATIENT
  Age: 46 Year
  Sex: Male
  Weight: 111.6 kg

DRUGS (6)
  1. ABILIFY [Suspect]
     Active Substance: ARIPIPRAZOLE
     Dosage: OTHER QUANTITY : 1 CAPSULE(S);?
     Route: 048
  2. LACOSAMIDE [Concomitant]
     Active Substance: LACOSAMIDE
  3. DULOXETINE [Concomitant]
     Active Substance: DULOXETINE
  4. KEPPRA [Concomitant]
     Active Substance: LEVETIRACETAM
  5. EVEKEO [Concomitant]
     Active Substance: AMPHETAMINE SULFATE
  6. LOSARTAN [Concomitant]
     Active Substance: LOSARTAN

REACTIONS (2)
  - Generalised tonic-clonic seizure [None]
  - Road traffic accident [None]

NARRATIVE: CASE EVENT DATE: 20220925
